FAERS Safety Report 9237877 (Version 2)
Quarter: 2013Q3

REPORT INFORMATION
  Report Type: Spontaneous
  Country: FR (occurrence: FR)
  Receive Date: 20130418
  Receipt Date: 20130906
  Transmission Date: 20140515
  Serious: Yes (Hospitalization)
  Sender: FDA-Public Use
  Company Number: FR-009507513-1304FRA005754

PATIENT
  Age: 66 Year
  Sex: Female

DRUGS (3)
  1. REBETOL [Suspect]
     Indication: HEPATITIS C VIRUS TEST POSITIVE
     Dosage: UNK
     Dates: start: 201107, end: 201207
  2. PEGASYS [Suspect]
     Indication: HEPATITIS C VIRUS TEST POSITIVE
     Dosage: UNK
     Route: 048
     Dates: start: 201107, end: 201207
  3. LEVOTHYROX [Concomitant]
     Dosage: 100 MICROGRAM, QD
     Route: 048

REACTIONS (3)
  - Cardiomyopathy [Unknown]
  - Chest pain [Unknown]
  - Dyspnoea [Unknown]
